FAERS Safety Report 4326093-8 (Version None)
Quarter: 2004Q1

REPORT INFORMATION
  Report Type: 
  Country: None (occurrence: None)
  Receive Date: 20040324
  Receipt Date: 20040309
  Transmission Date: 20041129
  Serious: No
  Sender: FDA-Public Use
  Company Number: 04H-062-0253155-00

PATIENT
  Age: 27 Year
  Sex: Female

DRUGS (1)
  1. HEPARIN SODIUM [Suspect]
     Indication: THROMBOSIS PROPHYLAXIS
     Dosage: SUBCUTANEOUS
     Route: 058

REACTIONS (7)
  - AORTIC OCCLUSION [None]
  - CEREBRAL ARTERY OCCLUSION [None]
  - FACIAL PARESIS [None]
  - HEMIPARESIS [None]
  - HEPARIN-INDUCED THROMBOCYTOPENIA [None]
  - PARAPARESIS [None]
  - PULMONARY EMBOLISM [None]
